FAERS Safety Report 11906787 (Version 1)
Quarter: 2016Q1

REPORT INFORMATION
  Report Type: Spontaneous
  Country: US (occurrence: None)
  Receive Date: 20160108
  Receipt Date: 20160108
  Transmission Date: 20160526
  Serious: Yes (Disabling)
  Sender: FDA-Public Use
  Company Number: None

PATIENT
  Age: 48 Year
  Sex: Female
  Weight: 122.93 kg

DRUGS (11)
  1. CELECOXIB 200MG CAPSULE TRIGEN-LABORATO [Suspect]
     Active Substance: CELECOXIB
     Indication: OSTEOARTHRITIS
     Dosage: 1 CAPSULE
     Route: 048
     Dates: start: 20151122
  2. TRAMADOL. [Concomitant]
     Active Substance: TRAMADOL
  3. TRILEPTAL [Concomitant]
     Active Substance: OXCARBAZEPINE
  4. TOPAMAX [Concomitant]
     Active Substance: TOPIRAMATE
  5. CARVEDELOL [Concomitant]
  6. CELECOXIB 200MG CAPSULE TRIGEN-LABORATO [Suspect]
     Active Substance: CELECOXIB
     Indication: INTERVERTEBRAL DISC DEGENERATION
     Dosage: 1 CAPSULE
     Route: 048
     Dates: start: 20151122
  7. TRAZODONE [Concomitant]
     Active Substance: TRAZODONE HYDROCHLORIDE
  8. QUINIPRIL [Concomitant]
  9. MULTIVITAMIN [Concomitant]
     Active Substance: VITAMINS
  10. VITAMIN B12 [Concomitant]
     Active Substance: CYANOCOBALAMIN
  11. BIOTIN [Concomitant]
     Active Substance: BIOTIN

REACTIONS (4)
  - Malaise [None]
  - Pain [None]
  - Arthralgia [None]
  - Movement disorder [None]

NARRATIVE: CASE EVENT DATE: 20151226
